FAERS Safety Report 8431456-5 (Version None)
Quarter: 2012Q2

REPORT INFORMATION
  Report Type: 
  Country: None (occurrence: None)
  Receive Date: 20120604
  Receipt Date: 20120521
  Transmission Date: 20120825
  Serious: Yes (Hospitalization)
  Sender: FDA-Public Use
  Company Number: 1281094

PATIENT
  Age: 41 Year
  Sex: Female

DRUGS (7)
  1. (ABATACEPT) [Suspect]
     Indication: RHEUMATOID ARTHRITIS
     Dosage: 125 MILLIGRAM, INTRAVENOUS (NOT OTHERWISE SPECIFIED)
     Route: 042
     Dates: start: 20100907
  2. (ABATACEPT) [Suspect]
     Indication: RHEUMATOID ARTHRITIS
     Dosage: 125 MILLIGRAM, INTRAVENOUS (NOT OTHERWISE SPECIFIED)
     Route: 042
     Dates: start: 20120419
  3. METHOTREXATE [Suspect]
     Indication: RHEUMATOID ARTHRITIS
     Dosage: 20 MILLIGRAM, 1 WEEK
     Dates: start: 20100720
  4. CEPHALEXIN [Concomitant]
  5. FOLIC ACID [Concomitant]
  6. (ADALIMUMAB) [Suspect]
     Indication: RHEUMATOID ARTHRITIS
     Dosage: 40 MILLIGRAM, 40 MILLIGRAM,SUBCUTANEOUS
     Route: 058
     Dates: start: 20100907
  7. (ADALIMUMAB) [Suspect]
     Indication: RHEUMATOID ARTHRITIS
     Dosage: 40 MILLIGRAM, 40 MILLIGRAM,SUBCUTANEOUS
     Route: 058
     Dates: start: 20120419

REACTIONS (4)
  - ABSCESS LIMB [None]
  - HYPERTHERMIA [None]
  - URINARY TRACT INFECTION [None]
  - NO THERAPEUTIC RESPONSE [None]
